FAERS Safety Report 7906163-5 (Version None)
Quarter: 2011Q4

REPORT INFORMATION
  Report Type: 
  Country: None (occurrence: None)
  Receive Date: 20111110
  Receipt Date: 20111102
  Transmission Date: 20120403
  Serious: Yes (Death, Hospitalization, Other)
  Sender: FDA-Public Use
  Company Number: CH-ROXANE LABORATORIES, INC.-2011-RO-01583RO

PATIENT
  Age: 78 Year
  Sex: Male

DRUGS (7)
  1. CEFTRIAXONE [Suspect]
     Indication: URINARY TRACT INFECTION
     Route: 042
  2. PREDNISONE TAB [Suspect]
     Indication: HODGKIN'S DISEASE NODULAR SCLEROSIS STAGE IV
     Dosage: 2.5 MG
  3. GRANULOCYTE COLONY STIMULATION FACTOR [Suspect]
     Indication: HODGKIN'S DISEASE NODULAR SCLEROSIS STAGE IV
  4. TRIMETHOPRIM + SULFAMETHOXAZOLE [Suspect]
     Dosage: 3000 MG
     Route: 048
  5. PREDNISONE TAB [Suspect]
     Dosage: 5 MG
  6. CLARITHROMYCIN [Suspect]
     Indication: URINARY TRACT INFECTION
     Route: 042
  7. TRIMETHOPRIM + SULFAMETHOXAZOLE [Suspect]
     Indication: NOCARDIOSIS
     Route: 042

REACTIONS (13)
  - HODGKIN'S DISEASE [None]
  - BRONCHOPULMONARY ASPERGILLOSIS [None]
  - MEMORY IMPAIRMENT [None]
  - EYE ABSCESS [None]
  - RETINAL HAEMORRHAGE [None]
  - PROSTATE CANCER METASTATIC [None]
  - LEUKOCORIA [None]
  - ENCEPHALITIS [None]
  - URINARY TRACT INFECTION [None]
  - GENERAL PHYSICAL HEALTH DETERIORATION [None]
  - NOCARDIOSIS [None]
  - FRONTOTEMPORAL DEMENTIA [None]
  - EYE INFECTION FUNGAL [None]
